FAERS Safety Report 18462299 (Version 1)
Quarter: 2020Q4

REPORT INFORMATION
  Report Type: Spontaneous
  Country: JP (occurrence: JP)
  Receive Date: 20201104
  Receipt Date: 20201104
  Transmission Date: 20210114
  Serious: Yes (Hospitalization, Other)
  Sender: FDA-Public Use
  Company Number: JP-TAKEDA-2020TJP023122

PATIENT
  Age: 81 Year
  Sex: Male

DRUGS (5)
  1. LIPITOR [Concomitant]
     Active Substance: ATORVASTATIN CALCIUM
     Dosage: UNK UNK, QD
     Route: 048
  2. TENELIA [Concomitant]
     Active Substance: TENELIGLIPTIN
     Dosage: 20 MILLIGRAM, QD
     Route: 048
  3. ACTOS [Suspect]
     Active Substance: PIOGLITAZONE HYDROCHLORIDE
     Indication: TYPE 2 DIABETES MELLITUS
     Dosage: UNK
     Route: 048
  4. ACTOS [Suspect]
     Active Substance: PIOGLITAZONE HYDROCHLORIDE
     Dosage: 15 MILLIGRAM, QD
     Route: 048
     Dates: end: 20201022
  5. BAYASPIRIN [Concomitant]
     Active Substance: ASPIRIN
     Dosage: UNK UNK, QD
     Route: 048

REACTIONS (3)
  - Nephrolithiasis [Recovered/Resolved]
  - Physical deconditioning [Recovered/Resolved]
  - Bladder cancer [Recovering/Resolving]

NARRATIVE: CASE EVENT DATE: 201906
